FAERS Safety Report 16796817 (Version 1)
Quarter: 2019Q3

REPORT INFORMATION
  Report Type: Report from Study
  Country: BR (occurrence: BR)
  Receive Date: 20190911
  Receipt Date: 20190911
  Transmission Date: 20191005
  Serious: Yes (Other)
  Sender: FDA-Public Use
  Company Number: PHHY2019BR211600

PATIENT
  Sex: Male

DRUGS (1)
  1. GALVUS MET [Suspect]
     Active Substance: METFORMIN HYDROCHLORIDE\VILDAGLIPTIN
     Indication: DIABETES MELLITUS
     Dosage: 0.5 DF, QD (METFORMIN 500 MG, VILDAGLIPTIN 50 MG)
     Route: 065

REACTIONS (2)
  - Diabetes mellitus inadequate control [Unknown]
  - Wrong technique in product usage process [Not Recovered/Not Resolved]
